FAERS Safety Report 5481918-8 (Version None)
Quarter: 2007Q4

REPORT INFORMATION
  Report Type: 
  Country: None (occurrence: None)
  Receive Date: 20071004
  Receipt Date: 20070920
  Transmission Date: 20080405
  Serious: Yes (Hospitalization, Other)
  Sender: FDA-Public Use
  Company Number: 2007BI018346

PATIENT
  Age: 57 Year
  Sex: Female
  Weight: 68.0396 kg

DRUGS (7)
  1. NATALIZUMAB [Suspect]
     Indication: MULTIPLE SCLEROSIS
     Dosage: 300 MG;QM; IV
     Route: 042
     Dates: start: 20070730, end: 20070827
  2. COREG [Concomitant]
  3. STEROIDAL EYE DROPS [Concomitant]
  4. IRON [Concomitant]
  5. ASPIRIN [Concomitant]
  6. LIPITOR [Concomitant]
  7. CAPTOPRIL [Concomitant]

REACTIONS (15)
  - ANAPHYLACTIC REACTION [None]
  - ASTHENIA [None]
  - BLINDNESS UNILATERAL [None]
  - BLOOD PRESSURE DECREASED [None]
  - CONVULSION [None]
  - DYSPNOEA [None]
  - HEART RATE INCREASED [None]
  - INFUSION RELATED REACTION [None]
  - OCULAR HYPERAEMIA [None]
  - OPTIC NEURITIS [None]
  - OXYGEN SATURATION DECREASED [None]
  - PULSE ABNORMAL [None]
  - SKIN DISCOLOURATION [None]
  - UNRESPONSIVE TO STIMULI [None]
  - URINARY INCONTINENCE [None]
